FAERS Safety Report 13503214 (Version 1)
Quarter: 2017Q2

REPORT INFORMATION
  Report Type: Spontaneous
  Country: US (occurrence: US)
  Receive Date: 20170502
  Receipt Date: 20170502
  Transmission Date: 20170830
  Serious: No
  Sender: FDA-Public Use
  Company Number: US-PFIZER INC-2017184017

PATIENT
  Sex: Female

DRUGS (1)
  1. XELJANZ [Suspect]
     Active Substance: TOFACITINIB CITRATE
     Dosage: 5 MG, 2X/DAY

REACTIONS (11)
  - Headache [Unknown]
  - Restless legs syndrome [Unknown]
  - Fatigue [Unknown]
  - Lethargy [Unknown]
  - Dyspnoea [Unknown]
  - Myalgia [Recovered/Resolved]
  - Insomnia [Unknown]
  - Musculoskeletal stiffness [Unknown]
  - Synovitis [Unknown]
  - Liver function test increased [Unknown]
  - Arthralgia [Recovering/Resolving]
